FAERS Safety Report 5971288-0 (Version None)
Quarter: 2008Q4

REPORT INFORMATION
  Report Type: 
  Country: None (occurrence: None)
  Receive Date: 20081128
  Receipt Date: 20081125
  Transmission Date: 20090506
  Serious: Yes (Hospitalization)
  Sender: FDA-Public Use
  Company Number: ES-PFIZER INC-2008088818

PATIENT
  Age: 84 Year
  Sex: Male

DRUGS (6)
  1. ALDACTONE [Suspect]
     Indication: CARDIAC FAILURE
     Route: 048
     Dates: start: 20080509
  2. ENALAPRIL MALEATE [Interacting]
     Indication: CARDIAC FAILURE
     Dosage: DAILY DOSE:5MG-FREQ:DAILY
     Route: 048
     Dates: end: 20080701
  3. FUROSEMIDE [Interacting]
     Indication: CARDIAC FAILURE
     Route: 048
     Dates: end: 20080701
  4. DIGOXIN [Concomitant]
     Indication: ATRIAL FIBRILLATION
     Route: 048
     Dates: end: 20080701
  5. BOI K [Concomitant]
     Indication: CARDIAC FAILURE
     Dosage: FREQ:DAILY
     Route: 048
     Dates: end: 20080701
  6. SINTROM [Concomitant]
     Indication: ATRIAL FIBRILLATION
     Route: 048

REACTIONS (2)
  - DRUG INTERACTION [None]
  - RENAL FAILURE ACUTE [None]
